FAERS Safety Report 24650293 (Version 3)
Quarter: 2025Q4

REPORT INFORMATION
  Report Type: Spontaneous
  Country: CA (occurrence: None)
  Receive Date: 20241122
  Receipt Date: 20251120
  Transmission Date: 20260118
  Serious: Yes (Other)
  Sender: ORGANON
  Company Number: CA-ORGANON-O2403CAN002765

PATIENT
  Age: 72 Year
  Sex: Female

DRUGS (62)
  1. ZENHALE [Suspect]
     Active Substance: FORMOTEROL FUMARATE\MOMETASONE FUROATE
     Indication: Product used for unknown indication
     Dosage: 2 DOSAGE FORM, 1 EVERY 12 HOURS (Q12H)
     Route: 065
  2. ZENHALE [Suspect]
     Active Substance: FORMOTEROL FUMARATE\MOMETASONE FUROATE
     Dosage: 2 DOSAGE FORM, 2 EVERY 1 DAYS (BID)
     Route: 065
  3. ZENHALE [Suspect]
     Active Substance: FORMOTEROL FUMARATE\MOMETASONE FUROATE
     Dosage: 2.0 DOSAGE FORM, 1 EVERY 12 HOURS (Q12H)
     Route: 065
  4. AMITRIPTYLINE [Suspect]
     Active Substance: AMITRIPTYLINE
     Indication: Product used for unknown indication
     Dosage: UNK
     Route: 065
  5. AMITRIPTYLINE [Suspect]
     Active Substance: AMITRIPTYLINE
     Indication: Product used for unknown indication
     Dosage: UNK
     Route: 065
  6. AMITRIPTYLINE [Suspect]
     Active Substance: AMITRIPTYLINE
     Indication: Product used for unknown indication
     Dosage: UNK
     Route: 065
  7. AMITRIPTYLINE [Suspect]
     Active Substance: AMITRIPTYLINE
     Dosage: UNK
     Route: 065
  8. BETAHISTINE [Suspect]
     Active Substance: BETAHISTINE
     Indication: Product used for unknown indication
     Dosage: UNK
     Route: 065
  9. BETAHISTINE [Suspect]
     Active Substance: BETAHISTINE
     Indication: Product used for unknown indication
     Dosage: UNK
     Route: 065
  10. BETAHISTINE [Suspect]
     Active Substance: BETAHISTINE
     Indication: Product used for unknown indication
     Dosage: UNK
     Route: 065
  11. BETAHISTINE [Suspect]
     Active Substance: BETAHISTINE
     Dosage: UNK
     Route: 065
  12. CANDESARTAN [Suspect]
     Active Substance: CANDESARTAN
     Indication: Product used for unknown indication
     Dosage: UNK
     Route: 065
  13. CANDESARTAN [Suspect]
     Active Substance: CANDESARTAN
     Dosage: UNK
     Route: 065
  14. CANDESARTAN CILEXETIL [Suspect]
     Active Substance: CANDESARTAN CILEXETIL
     Indication: Product used for unknown indication
     Dosage: UNK
     Route: 065
  15. CANDESARTAN CILEXETIL [Suspect]
     Active Substance: CANDESARTAN CILEXETIL
     Dosage: UNK
     Route: 065
  16. CICLESONIDE [Suspect]
     Active Substance: CICLESONIDE
     Indication: Nasal congestion
     Dosage: UNK
     Route: 065
  17. CYMBALTA [Suspect]
     Active Substance: DULOXETINE HYDROCHLORIDE
     Indication: Product used for unknown indication
     Dosage: UNK (DOSAGE FORM: NOT SPECIFIED)
     Route: 065
  18. DETROL [Suspect]
     Active Substance: TOLTERODINE TARTRATE
     Indication: Product used for unknown indication
     Dosage: UNK
     Route: 065
  19. FLUTICASONE PROPIONATE [Suspect]
     Active Substance: FLUTICASONE PROPIONATE
     Indication: Product used for unknown indication
     Dosage: UNK
     Route: 065
  20. FLUTICASONE PROPIONATE\SALMETEROL XINAFOATE [Suspect]
     Active Substance: FLUTICASONE PROPIONATE\SALMETEROL XINAFOATE
     Indication: Product used for unknown indication
     Dosage: UNK (DOSAGE FORM: NOT SPECIFIED)
     Route: 065
  21. FLUTICASONE [Suspect]
     Active Substance: FLUTICASONE
     Indication: Product used for unknown indication
     Dosage: UNK
     Route: 065
  22. GABAPENTIN [Suspect]
     Active Substance: GABAPENTIN
     Indication: Product used for unknown indication
     Dosage: 300 MILLIGRAM 1 EVERY 6 HOURS (Q6H) (DOSAGE FORM: NOT SPECIFIED)
     Route: 065
  23. GABAPENTIN [Suspect]
     Active Substance: GABAPENTIN
     Dosage: 300.0 MILLIGRAM 1 EVERY 6 HOURS (Q6H) (DOSAGE FORM: NOT SPECIFIED)
     Route: 065
  24. GABAPENTIN [Suspect]
     Active Substance: GABAPENTIN
     Dosage: 300.0 MILLIGRAM 1 EVERY 25 DAYS
     Route: 065
  25. INFLUENZA VIRUS VACCINE [Suspect]
     Active Substance: INFLUENZA VIRUS VACCINE
     Indication: Prophylaxis
     Dosage: UNK
     Route: 065
  26. IRON [Suspect]
     Active Substance: IRON
     Indication: Product used for unknown indication
     Dosage: UNK (DOSAGE FORM: NOT SPECIFIED)
     Route: 065
  27. FERROUS SULFATE ANHYDROUS [Suspect]
     Active Substance: FERROUS SULFATE ANHYDROUS
     Indication: Product used for unknown indication
     Dosage: UNK
     Route: 065
  28. LANSOPRAZOLE [Suspect]
     Active Substance: LANSOPRAZOLE
     Indication: Gastrooesophageal reflux disease
     Dosage: UNK
     Route: 065
  29. LANSOPRAZOLE [Suspect]
     Active Substance: LANSOPRAZOLE
     Dosage: UNK
     Route: 065
  30. LIPITOR [Suspect]
     Active Substance: ATORVASTATIN CALCIUM
     Indication: Product used for unknown indication
     Dosage: UNK
     Route: 065
  31. MEPOLIZUMAB [Suspect]
     Active Substance: MEPOLIZUMAB
     Indication: Asthma
     Dosage: 100 MILLIGRAM,1 EVERY 4 WEEKS
  32. MEPOLIZUMAB [Suspect]
     Active Substance: MEPOLIZUMAB
     Dosage: FORMULATION: SOLUTION FOR INJECTION IN PRE-FILLED SYRINGE,100 MILLIGRAM,1 EVERY 4 WEEKS
  33. MEPOLIZUMAB [Suspect]
     Active Substance: MEPOLIZUMAB
     Dosage: FORMULATION: SOLUTION FOR INJECTION IN PRE-FILLED SYRINGE,100 MILLIGRAM,1 EVERY 8 HOURS
  34. MEPOLIZUMAB [Suspect]
     Active Substance: MEPOLIZUMAB
     Dosage: FORMULATION: SOLUTION FOR INJECTION IN PRE-FILLED SYRINGE,100 MILLIGRAM,1 EVERY 4 WEEKS
  35. MEPOLIZUMAB [Suspect]
     Active Substance: MEPOLIZUMAB
     Dosage: FORMULATION: SOLUTION FOR INJECTION IN PRE-FILLED SYRINGE,100 MILLIGRAM,1 EVERY 4 WEEKS
  36. MEPOLIZUMAB [Suspect]
     Active Substance: MEPOLIZUMAB
     Indication: Asthma
     Dosage: 100 MILLIGRAM, 1 EVERY 1 MONTHS
  37. MEPOLIZUMAB [Suspect]
     Active Substance: MEPOLIZUMAB
     Dosage: 100 MILLIGRAM, 1 EVERY 1 MONTHS
  38. MEPOLIZUMAB [Suspect]
     Active Substance: MEPOLIZUMAB
     Dosage: 100 MILLIGRAM, 1 EVERY 8 HOURS
  39. MEPOLIZUMAB [Suspect]
     Active Substance: MEPOLIZUMAB
     Dosage: 100 MILLIGRAM, 1 EVERY 1 MONTHS
  40. MEPOLIZUMAB [Suspect]
     Active Substance: MEPOLIZUMAB
     Dosage: 100 MILLIGRAM, 1 EVERY 1 MONTHS
  41. METFORMIN [Suspect]
     Active Substance: METFORMIN HYDROCHLORIDE
     Indication: Product used for unknown indication
     Dosage: 500 MILLIGRAM, Q12H
     Route: 065
  42. METFORMIN [Suspect]
     Active Substance: METFORMIN HYDROCHLORIDE
     Dosage: 500 MILLIGRAM, 2 EVERY 1 DAYS (BID)
     Route: 065
  43. METFORMIN [Suspect]
     Active Substance: METFORMIN HYDROCHLORIDE
     Indication: Product used for unknown indication
     Dosage: 500.0 MILLIGRAM 1 EVERY 12 HOURS (Q12H)
     Route: 065
  44. NUCALA [Suspect]
     Active Substance: MEPOLIZUMAB
     Indication: Asthma
     Dosage: 100 MILLIGRAM 1 EVERY 1 MINUTES
  45. NUCALA [Suspect]
     Active Substance: MEPOLIZUMAB
     Dosage: 100 MILLIGRAM 1 EVERY 1 MONTHS
  46. NUCALA [Suspect]
     Active Substance: MEPOLIZUMAB
     Dosage: 100 MILLIGRAM 1 EVERY 1 MONTHS
  47. NUCALA [Suspect]
     Active Substance: MEPOLIZUMAB
     Dosage: 100 MILLIGRAM 1 EVERY 4 WEEKS
  48. NUCALA [Suspect]
     Active Substance: MEPOLIZUMAB
     Dosage: 100 MILLIGRAM 3 EVERY 1 DAY
  49. NUCALA [Suspect]
     Active Substance: MEPOLIZUMAB
     Dosage: 100 MILLIGRAM 1 EVERY 1 MONTHS
  50. OMNARIS [Suspect]
     Active Substance: CICLESONIDE
     Indication: Nasal congestion
     Dosage: UNK
     Route: 065
  51. ROPINIROLE [Suspect]
     Active Substance: ROPINIROLE
     Indication: Product used for unknown indication
     Dosage: UNK
     Route: 065
  52. ROPINIROLE [Suspect]
     Active Substance: ROPINIROLE
     Dosage: UNK
     Route: 065
  53. ROPINIROLE HYDROCHLORIDE [Suspect]
     Active Substance: ROPINIROLE HYDROCHLORIDE
     Indication: Product used for unknown indication
     Dosage: UNK
     Route: 065
  54. ROPINIROLE HYDROCHLORIDE [Suspect]
     Active Substance: ROPINIROLE HYDROCHLORIDE
     Indication: Product used for unknown indication
     Dosage: UNK
     Route: 065
  55. SYNTHROID [Suspect]
     Active Substance: LEVOTHYROXINE SODIUM
     Indication: Product used for unknown indication
     Dosage: UNK (DOSAGE FORM: NOT SPECIFIED)
     Route: 065
  56. TEMAZEPAM [Suspect]
     Active Substance: TEMAZEPAM
     Indication: Product used for unknown indication
     Dosage: UNK
     Route: 065
  57. TIOTROPIUM BROMIDE MONOHYDRATE [Suspect]
     Active Substance: TIOTROPIUM BROMIDE MONOHYDRATE
     Indication: Product used for unknown indication
     Dosage: 2 DOSAGE FORM, 1 EVERY 1 DAYS
     Route: 065
  58. TIOTROPIUM BROMIDE [Suspect]
     Active Substance: TIOTROPIUM BROMIDE
     Indication: Product used for unknown indication
     Dosage: 2.0 DOSAGE FORM 1 EVERY 1 DAYS (QD)
     Route: 065
  59. VENTOLIN [Suspect]
     Active Substance: ALBUTEROL SULFATE
     Indication: Product used for unknown indication
     Dosage: 1 EVERY 1 DAYS (QD), (DOSAGE FORM: NOT SPECIFIED)
     Route: 065
  60. VENTOLIN [Suspect]
     Active Substance: ALBUTEROL SULFATE
     Dosage: UNK (DOSAGE FORM: NOT SPECIFIED)
     Route: 065
  61. TYLENOL [Concomitant]
     Active Substance: ACETAMINOPHEN
     Indication: Product used for unknown indication
     Dosage: UNK
     Route: 065
  62. TYLENOL [Concomitant]
     Active Substance: ACETAMINOPHEN
     Dosage: UNK (DOSAGE FORM: NOT SPECIFIED)
     Route: 065

REACTIONS (16)
  - Asthenia [Not Recovered/Not Resolved]
  - Asthma [Not Recovered/Not Resolved]
  - Atrial fibrillation [Not Recovered/Not Resolved]
  - Atrial fibrillation [Not Recovered/Not Resolved]
  - Back pain [Not Recovered/Not Resolved]
  - Gastrooesophageal reflux disease [Not Recovered/Not Resolved]
  - Gastrooesophageal reflux disease [Not Recovered/Not Resolved]
  - Haemorrhoids [Not Recovered/Not Resolved]
  - Hypersensitivity [Not Recovered/Not Resolved]
  - Nasal congestion [Not Recovered/Not Resolved]
  - Polyp [Not Recovered/Not Resolved]
  - Rectal haemorrhage [Not Recovered/Not Resolved]
  - Skin lesion [Not Recovered/Not Resolved]
  - Tachycardia [Not Recovered/Not Resolved]
  - Weight decreased [Not Recovered/Not Resolved]
  - Product use issue [Not Recovered/Not Resolved]
